FAERS Safety Report 6099147-6 (Version None)
Quarter: 2009Q1

REPORT INFORMATION
  Report Type: 
  Country: None (occurrence: None)
  Receive Date: 20090302
  Receipt Date: 20090226
  Transmission Date: 20090719
  Serious: No
  Sender: FDA-Public Use
  Company Number: US-B.I. PHARMACEUTICALS,INC./RIDGEFIELD-2009-BP-02124BP

PATIENT
  Age: 71 Year
  Sex: Male

DRUGS (2)
  1. COMBIVENT [Suspect]
     Indication: ASTHMA
     Route: 055
     Dates: start: 20010101, end: 20081201
  2. COMBIVENT [Suspect]
     Dosage: 8PUF
     Route: 055
     Dates: start: 20081201, end: 20090130

REACTIONS (4)
  - ACCIDENTAL OVERDOSE [None]
  - DYSPNOEA [None]
  - GASTROOESOPHAGEAL REFLUX DISEASE [None]
  - POLYURIA [None]
